FAERS Safety Report 20865990 (Version 1)
Quarter: 2022Q2

REPORT INFORMATION
  Report Type: Spontaneous
  Country: US (occurrence: None)
  Receive Date: 20220523
  Receipt Date: 20220523
  Transmission Date: 20220721
  Serious: Yes (Hospitalization)
  Sender: FDA-Public Use
  Company Number: None

PATIENT
  Age: 92 Year
  Sex: Male
  Weight: 72 kg

DRUGS (1)
  1. APIXABAN [Suspect]
     Active Substance: APIXABAN
     Indication: Atrial fibrillation
     Dosage: FREQUENCY : TWICE A DAY;?
     Route: 048
     Dates: start: 20200605, end: 20211112

REACTIONS (3)
  - Rectal haemorrhage [None]
  - Haemorrhoidal haemorrhage [None]
  - Lower gastrointestinal haemorrhage [None]

NARRATIVE: CASE EVENT DATE: 20211112
